FAERS Safety Report 12225233 (Version 1)
Quarter: 2016Q1

REPORT INFORMATION
  Report Type: Spontaneous
  Country: CA (occurrence: CA)
  Receive Date: 20160331
  Receipt Date: 20160331
  Transmission Date: 20160526
  Serious: Yes (Hospitalization, Other)
  Sender: FDA-Public Use
  Company Number: CA-GLAXOSMITHKLINE-CA2016GSK043698

PATIENT
  Age: 14 Year
  Sex: Female

DRUGS (1)
  1. LAMOTRIGINE. [Suspect]
     Active Substance: LAMOTRIGINE
     Indication: PARTIAL SEIZURES

REACTIONS (21)
  - Respiratory disorder [Recovered/Resolved]
  - International normalised ratio increased [Recovered/Resolved]
  - Eosinophil count increased [Recovered/Resolved]
  - White blood cell count decreased [Recovered/Resolved]
  - Organising pneumonia [Recovered/Resolved]
  - Blood chloride decreased [Recovered/Resolved]
  - Pyrexia [Recovered/Resolved]
  - C-reactive protein increased [Recovered/Resolved]
  - Anaemia [Recovered/Resolved]
  - Prothrombin time prolonged [Recovered/Resolved]
  - Rash maculo-papular [Recovered/Resolved]
  - Pulmonary haemorrhage [Recovered/Resolved]
  - Neutropenia [Recovered/Resolved]
  - Decreased appetite [Recovered/Resolved]
  - Platelet count decreased [Recovered/Resolved]
  - Drug reaction with eosinophilia and systemic symptoms [Recovered/Resolved]
  - Cough [Recovered/Resolved]
  - Chills [Recovered/Resolved]
  - Chest X-ray abnormal [Recovered/Resolved]
  - Red blood cell sedimentation rate increased [Recovered/Resolved]
  - Lymphadenopathy mediastinal [Recovered/Resolved]
